FAERS Safety Report 10929493 (Version 2)
Quarter: 2015Q2

REPORT INFORMATION
  Report Type: Spontaneous
  Country: US (occurrence: US)
  Receive Date: 20150319
  Receipt Date: 20150524
  Transmission Date: 20150821
  Serious: No
  Sender: FDA-Public Use
  Company Number: US-JNJFOC-20130313087

PATIENT
  Age: 58 Year
  Sex: Female
  Weight: 90.72 kg

DRUGS (3)
  1. CONCERTA [Suspect]
     Active Substance: METHYLPHENIDATE HYDROCHLORIDE
     Indication: ATTENTION DEFICIT/HYPERACTIVITY DISORDER
     Route: 048
     Dates: start: 201301
  2. CYMBALTA [Concomitant]
     Active Substance: DULOXETINE HYDROCHLORIDE
     Indication: DEPRESSION
     Dosage: AT NIGHT
     Route: 048
     Dates: start: 2012
  3. ABILIFY [Concomitant]
     Active Substance: ARIPIPRAZOLE
     Dosage: INDICATION WAS GIVEN AS EXTENDOR
     Route: 048
     Dates: start: 2012

REACTIONS (1)
  - Fungal infection [Recovered/Resolved]

NARRATIVE: CASE EVENT DATE: 201302
